FAERS Safety Report 19437505 (Version 1)
Quarter: 2021Q2

REPORT INFORMATION
  Report Type: Spontaneous
  Country: GB (occurrence: GB)
  Receive Date: 20210618
  Receipt Date: 20210618
  Transmission Date: 20210717
  Serious: Yes (Hospitalization)
  Sender: FDA-Public Use
  Company Number: GB-ALVOGEN-2021-ALVOGEN-117104

PATIENT
  Age: 35 Year
  Sex: Male

DRUGS (1)
  1. DISULFIRAM. [Suspect]
     Active Substance: DISULFIRAM
     Indication: ALCOHOLISM

REACTIONS (1)
  - Methaemoglobinaemia [Recovering/Resolving]
